FAERS Safety Report 23753693 (Version 1)
Quarter: 2024Q2

REPORT INFORMATION
  Report Type: Spontaneous
  Country: FR (occurrence: FR)
  Receive Date: 20240417
  Receipt Date: 20240417
  Transmission Date: 20240715
  Serious: Yes (Other)
  Sender: FDA-Public Use
  Company Number: FR-SUN PHARMACEUTICAL INDUSTRIES LTD-2024RR-442845

PATIENT
  Age: 82 Year
  Sex: Female
  Weight: 45 kg

DRUGS (6)
  1. VENLAFAXINE [Suspect]
     Active Substance: VENLAFAXINE HYDROCHLORIDE
     Indication: Product used for unknown indication
     Dosage: 150 MILLIGRAM, TOTAL 1
     Route: 048
     Dates: start: 20231231, end: 20231231
  2. AMLODIPINE [Suspect]
     Active Substance: AMLODIPINE BESYLATE
     Indication: Hypertension
     Dosage: 10 MILLIGRAM, TOTAL 1
     Route: 048
     Dates: start: 20231231, end: 20231231
  3. RAMIPRIL [Suspect]
     Active Substance: RAMIPRIL
     Indication: Hypertension
     Dosage: 10 MILLIGRAM, TOTAL 1
     Route: 048
     Dates: start: 20231231, end: 20231231
  4. CELIPROLOL [Suspect]
     Active Substance: CELIPROLOL
     Indication: Hypertension
     Dosage: 400 MILLIGRAM, TOTAL 1
     Route: 048
     Dates: start: 20231231, end: 20231231
  5. KARDEGIC [Suspect]
     Active Substance: ASPIRIN DL-LYSINE
     Indication: Product used for unknown indication
     Dosage: 2 DOSAGE FORM, TOTAL 1
     Route: 048
     Dates: start: 20231231, end: 20231231
  6. LAMOTRIGINE [Suspect]
     Active Substance: LAMOTRIGINE
     Indication: Product used for unknown indication
     Dosage: 25 MILLIGRAM, BID
     Route: 048
     Dates: start: 20231231, end: 20231231

REACTIONS (2)
  - Wrong schedule [Recovered/Resolved]
  - Hypotension [Recovered/Resolved]

NARRATIVE: CASE EVENT DATE: 20231231
